FAERS Safety Report 23888961 (Version 2)
Quarter: 2024Q3

REPORT INFORMATION
  Report Type: Spontaneous
  Country: US (occurrence: None)
  Receive Date: 20240523
  Receipt Date: 20240708
  Transmission Date: 20241016
  Serious: Yes (Other)
  Sender: ASTRAZENECA
  Company Number: 2024A119183

PATIENT
  Sex: Male

DRUGS (3)
  1. IMFINZI [Suspect]
     Active Substance: DURVALUMAB
     Indication: Cholangiocarcinoma
     Route: 042
  2. GEMCITABINE [Concomitant]
     Active Substance: GEMCITABINE
  3. CISPLATIN [Concomitant]
     Active Substance: CISPLATIN

REACTIONS (1)
  - Rash [Recovered/Resolved]
